FAERS Safety Report 5043514-6 (Version None)
Quarter: 2006Q2

REPORT INFORMATION
  Report Type: 
  Country: None (occurrence: None)
  Receive Date: 20060601
  Receipt Date: 20060113
  Transmission Date: 20061013
  Serious: No
  Sender: FDA-Public Use
  Company Number: 2006PV007091

PATIENT
  Age: 61 Year
  Sex: Female
  Weight: 108.8633 kg

DRUGS (12)
  1. BYETTA [Suspect]
     Indication: DIABETES MELLITUS NON-INSULIN-DEPENDENT
     Dosage: 5 MCG;BID;SC
     Route: 058
     Dates: start: 20060112
  2. ASPIRIN [Concomitant]
  3. COREG [Concomitant]
  4. NEURONTIN [Concomitant]
  5. ATICAND [Concomitant]
  6. AMARYL [Concomitant]
  7. ZOCOR [Concomitant]
  8. GLUCOPHAGE XR [Concomitant]
  9. CYMBALTA [Concomitant]
  10. COUMADIN [Concomitant]
  11. NPH INSULIN [Concomitant]
  12. REGULAR INSULIN [Concomitant]

REACTIONS (1)
  - BLOOD GLUCOSE INCREASED [None]
